FAERS Safety Report 22209237 (Version 2)
Quarter: 2023Q2

REPORT INFORMATION
  Report Type: Report from Study
  Country: RO (occurrence: RO)
  Receive Date: 20230413
  Receipt Date: 20230425
  Transmission Date: 20230721
  Serious: Yes (Disabling)
  Sender: FDA-Public Use
  Company Number: RO-BAYER-2023A046573

PATIENT
  Age: 54 Year
  Sex: Male
  Weight: 135 kg

DRUGS (3)
  1. RIVAROXABAN [Suspect]
     Active Substance: RIVAROXABAN
     Indication: Atrial fibrillation
     Dosage: 20 MG, QD
     Route: 048
     Dates: start: 20210806
  2. FINERENONE [Suspect]
     Active Substance: FINERENONE
     Indication: Cardiac failure
     Dosage: UNK
     Route: 048
  3. FINERENONE [Suspect]
     Active Substance: FINERENONE
     Dosage: 40 MG, QD
     Route: 048
     Dates: start: 20221006

REACTIONS (1)
  - Retinal detachment [Not Recovered/Not Resolved]

NARRATIVE: CASE EVENT DATE: 20220928
